APPROVED DRUG PRODUCT: DIPHENHYDRAMINE HYDROCHLORIDE
Active Ingredient: DIPHENHYDRAMINE HYDROCHLORIDE
Strength: 12.5MG/5ML
Dosage Form/Route: SYRUP;ORAL
Application: A072416 | Product #001
Applicant: SCIEGEN PHARMACEUTICALS INC
Approved: Sep 28, 1990 | RLD: No | RS: No | Type: DISCN